FAERS Safety Report 9081181 (Version 2)
Quarter: 2013Q1

REPORT INFORMATION
  Report Type: Spontaneous
  Country: US (occurrence: US)
  Receive Date: 20130218
  Receipt Date: 20130305
  Transmission Date: 20140127
  Serious: No
  Sender: FDA-Public Use
  Company Number: US-PFIZER INC-2013058044

PATIENT
  Age: 23 Year
  Sex: Female
  Weight: 136 kg

DRUGS (2)
  1. PROVERA [Suspect]
     Indication: AMENORRHOEA
     Dosage: UNK
     Route: 048
     Dates: start: 20130121, end: 20130125
  2. METFORMIN [Concomitant]
     Dosage: UNK

REACTIONS (2)
  - Breast tenderness [Not Recovered/Not Resolved]
  - Breast discharge [Not Recovered/Not Resolved]
